FAERS Safety Report 17279497 (Version 1)
Quarter: 2020Q1

REPORT INFORMATION
  Report Type: Spontaneous
  Country: US (occurrence: US)
  Receive Date: 20200116
  Receipt Date: 20200116
  Transmission Date: 20200409
  Serious: No
  Sender: FDA-Public Use
  Company Number: US-SA-2020SA006205

PATIENT
  Sex: Female

DRUGS (1)
  1. FLEXALL PAIN RELIEVING [Suspect]
     Active Substance: MENTHOL
     Dosage: UNK
     Route: 061

REACTIONS (2)
  - Eye irritation [Unknown]
  - Skin exfoliation [Unknown]
